FAERS Safety Report 10396738 (Version 1)
Quarter: 2014Q3

REPORT INFORMATION
  Report Type: Report from Study
  Country: None (occurrence: US)
  Receive Date: 20140820
  Receipt Date: 20140820
  Transmission Date: 20150326
  Serious: Yes (Hospitalization)
  Sender: FDA-Public Use
  Company Number: US-TEVA-503233USA

PATIENT
  Age: 1 Year
  Sex: Male
  Weight: 14.4 kg

DRUGS (12)
  1. CYCLOPHOSPHAMIDE. [Suspect]
     Active Substance: CYCLOPHOSPHAMIDE
     Dates: start: 20140520
  2. HYDROCORTISONE. [Suspect]
     Active Substance: HYDROCORTISONE
     Dates: start: 20140520
  3. CYTARABINE. [Suspect]
     Active Substance: CYTARABINE
     Dates: start: 20140520
  4. DAUNORUBICIN [Suspect]
     Active Substance: DAUNORUBICIN
     Dates: start: 20140520
  5. ETOPOSIDE. [Suspect]
     Active Substance: ETOPOSIDE
     Dates: start: 20140520
  6. LESTAURTINIB [Suspect]
     Active Substance: LESTAURTINIB
     Dates: start: 20140520
  7. VINCRISTINE [Suspect]
     Active Substance: VINCRISTINE
     Dates: start: 20140520
  8. FOLINIC ACID [Suspect]
     Active Substance: LEUCOVORIN
     Dates: start: 20140520
  9. METHOTREXATE [Suspect]
     Active Substance: METHOTREXATE
     Dates: start: 20140520
  10. DEXAMETHASONE. [Suspect]
     Active Substance: DEXAMETHASONE
     Dates: start: 20140520
  11. ERWINIA ASPARAGINASE [Suspect]
     Active Substance: ASPARAGINASE ERWINIA CHRYSANTHEMI
     Dates: start: 20140520
  12. PREDNISONE. [Suspect]
     Active Substance: PREDNISONE
     Dates: start: 20140520

REACTIONS (1)
  - Escherichia infection [Not Recovered/Not Resolved]

NARRATIVE: CASE EVENT DATE: 20140730
